FAERS Safety Report 9240453 (Version 1)
Quarter: 2013Q1

REPORT INFORMATION
  Report Type: Spontaneous
  Country: US (occurrence: None)
  Receive Date: 20121107
  Receipt Date: 20121107
  Transmission Date: 20140127
  Serious: No
  Sender: FDA-Public Use
  Company Number: 2012HGS-003868

PATIENT
  Age: 42 Year
  Sex: Female
  Weight: 95.26 kg

DRUGS (10)
  1. BENLYSTA [Suspect]
     Indication: SYSTEMIC LUPUS ERYTHEMATOSUS
     Dosage: 1 IN 28 D, INTRAVENOUS DRIP
     Route: 041
     Dates: start: 20120619
  2. PREDNISONE [Concomitant]
  3. METHOTREXATE [Concomitant]
  4. ASA (ACETYLSALICYLIC ACID) [Concomitant]
  5. REVATIO (SILDENAFIL CITRATE) (UNKNOWN) (SILDENAFIL) [Concomitant]
  6. FOLIC ACID [Concomitant]
  7. SPIRODACTONE (SPIRONOLACTONE) [Concomitant]
  8. POTASSIUM [Concomitant]
  9. LISINOPRIL [Concomitant]
  10. FUROSEMIDE [Concomitant]

REACTIONS (9)
  - Amenorrhoea [None]
  - Weight increased [None]
  - Abdominal distension [None]
  - Hair growth abnormal [None]
  - Dizziness [None]
  - Dizziness [None]
  - Depression [None]
  - Headache [None]
  - Initial insomnia [None]
